FAERS Safety Report 25410246 (Version 2)
Quarter: 2025Q3

REPORT INFORMATION
  Report Type: Spontaneous
  Country: US (occurrence: US)
  Receive Date: 20250608
  Receipt Date: 20250714
  Transmission Date: 20251021
  Serious: No
  Sender: SANOFI AVENTIS
  Company Number: US-SA-2025SA160777

PATIENT
  Sex: Female
  Weight: 63.18 kg

DRUGS (13)
  1. DUPIXENT [Suspect]
     Active Substance: DUPILUMAB
     Indication: Dermatitis atopic
     Dosage: 300 MG, QM
     Route: 058
  2. DUPIXENT [Suspect]
     Active Substance: DUPILUMAB
     Dosage: QOW
     Route: 058
  3. LOMOTIL [Concomitant]
     Active Substance: ATROPINE SULFATE\DIPHENOXYLATE HYDROCHLORIDE
  4. PROTONIX [Concomitant]
     Active Substance: PANTOPRAZOLE SODIUM
  5. GABAPENTIN [Concomitant]
     Active Substance: GABAPENTIN
  6. GAS-X [Concomitant]
     Active Substance: DIMETHICONE
  7. BIOTIN [Concomitant]
     Active Substance: BIOTIN
  8. VITAMINS [Concomitant]
     Active Substance: VITAMINS
  9. PROTONIX [Concomitant]
     Active Substance: PANTOPRAZOLE SODIUM
  10. LOMOTIL [Concomitant]
     Active Substance: ATROPINE SULFATE\DIPHENOXYLATE HYDROCHLORIDE
  11. VITAMINS [Concomitant]
     Active Substance: VITAMINS
  12. GABAPENTIN [Concomitant]
     Active Substance: GABAPENTIN
  13. BIOTIN [Concomitant]
     Active Substance: BIOTIN

REACTIONS (3)
  - Rebound atopic dermatitis [Unknown]
  - Rash macular [Unknown]
  - Inappropriate schedule of product administration [Unknown]
